FAERS Safety Report 8249531-7 (Version None)
Quarter: 2012Q2

REPORT INFORMATION
  Report Type: 
  Country: None (occurrence: None)
  Receive Date: 20120402
  Receipt Date: 20120323
  Transmission Date: 20120825
  Serious: Yes (Other)
  Sender: FDA-Public Use
  Company Number: US-BAYER-2012-028779

PATIENT
  Age: 30 Year
  Sex: Female
  Weight: 73.469 kg

DRUGS (2)
  1. DROSPIRENONE AND ETHINYL ESTRADIOL [Suspect]
  2. YASMIN [Suspect]

REACTIONS (1)
  - DEEP VEIN THROMBOSIS [None]
